FAERS Safety Report 5105869-3 (Version None)
Quarter: 2006Q3

REPORT INFORMATION
  Report Type: 
  Country: None (occurrence: None)
  Receive Date: 20060915
  Receipt Date: 20060824
  Transmission Date: 20061208
  Serious: Yes (Hospitalization)
  Sender: FDA-Public Use
  Company Number: FR-GLAXOSMITHKLINE-B0435425A

PATIENT
  Age: 67 Year
  Sex: Female

DRUGS (4)
  1. LAMICTAL [Suspect]
     Indication: CONVULSION
     Dosage: 100MG PER DAY
     Route: 048
     Dates: start: 20060704, end: 20060806
  2. TEGRETOL LP 400 [Suspect]
     Dosage: 800MG PER DAY
     Route: 048
     Dates: start: 20060623, end: 20060717
  3. ALEPSAL [Suspect]
     Dosage: 100MG PER DAY
     Route: 048
     Dates: start: 20060623
  4. AMLOR [Suspect]
     Dosage: 5MG PER DAY
     Route: 048

REACTIONS (5)
  - CEREBRAL HAEMORRHAGE [None]
  - CEREBROVASCULAR ACCIDENT [None]
  - CULTURE URINE POSITIVE [None]
  - PULMONARY EMBOLISM [None]
  - PYREXIA [None]
